FAERS Safety Report 5305146-1 (Version None)
Quarter: 2007Q2

REPORT INFORMATION
  Report Type: 
  Country: None (occurrence: None)
  Receive Date: 20070417
  Receipt Date: 20070402
  Transmission Date: 20071010
  Serious: Yes (Hospitalization)
  Sender: FDA-Public Use
  Company Number: 2007S1002924

PATIENT
  Age: 74 Year
  Sex: Female
  Weight: 90.7194 kg

DRUGS (3)
  1. DILTIAZEM HYDROCHLORIDE [Suspect]
     Indication: BLOOD PRESSURE
     Dosage: 120 MG; TWICE A DAY; ORAL
     Route: 048
     Dates: start: 20070301
  2. BETA BLOCKING AGENTS [Suspect]
     Indication: BLOOD PRESSURE
     Dosage: ORAL, ORAL
     Route: 048
  3. SIMVASTATIN [Concomitant]

REACTIONS (4)
  - BRADYCARDIA [None]
  - CHEST PAIN [None]
  - DRUG INTERACTION [None]
  - PRESYNCOPE [None]
